FAERS Safety Report 7963392-2 (Version None)
Quarter: 2011Q4

REPORT INFORMATION
  Report Type: 
  Country: None (occurrence: None)
  Receive Date: 20111208
  Receipt Date: 20111124
  Transmission Date: 20120403
  Serious: Yes (Hospitalization, Other)
  Sender: FDA-Public Use
  Company Number: US-RANBAXY-2011RR-50911

PATIENT
  Sex: Male

DRUGS (7)
  1. LEVAQUIN [Suspect]
     Dosage: 750 MG, QD
     Dates: start: 20090330, end: 20090406
  2. MEDROL [Suspect]
     Indication: HYPERSENSITIVITY
     Route: 065
  3. NASONEX [Suspect]
     Indication: HYPERSENSITIVITY
     Dosage: UNK
     Route: 065
     Dates: start: 20100825, end: 20110108
  4. LEVAQUIN [Suspect]
     Indication: SINUSITIS
     Dosage: 750 MG, QD
     Route: 048
     Dates: start: 20090211
  5. PREDNISOLONE [Suspect]
     Dosage: 10 MG, QD
     Dates: start: 20090330
  6. CIPROFLOXACIN [Suspect]
     Indication: INFECTION
     Route: 065
  7. PREDNISOLONE [Suspect]
     Indication: HYPERSENSITIVITY
     Dosage: 10 MG, QD
     Route: 048
     Dates: start: 20090211

REACTIONS (6)
  - ROTATOR CUFF SYNDROME [None]
  - TENDON DISORDER [None]
  - DEPRESSION [None]
  - JOINT INJURY [None]
  - MYALGIA [None]
  - TENDON RUPTURE [None]
